FAERS Safety Report 18682687 (Version 1)
Quarter: 2020Q4

REPORT INFORMATION
  Report Type: Spontaneous
  Country: CN (occurrence: CN)
  Receive Date: 20201230
  Receipt Date: 20201230
  Transmission Date: 20210114
  Serious: Yes (Other)
  Sender: FDA-Public Use
  Company Number: PHBS1985CN01837

PATIENT
  Age: 62 Year
  Sex: Male

DRUGS (4)
  1. RIFAMPICIN [Suspect]
     Active Substance: RIFAMPIN
     Indication: LEPROSY
     Route: 065
     Dates: start: 19820319
  2. CLOFAZIMINE [Suspect]
     Active Substance: CLOFAZIMINE
     Indication: LEPROSY
     Route: 065
  3. DAPSONE. [Suspect]
     Active Substance: DAPSONE
     Indication: LEPROSY
     Route: 065
  4. PROTHIONAMIDE [Concomitant]
     Active Substance: PROTIONAMIDE
     Indication: LEPROSY
     Route: 065
     Dates: start: 19820319

REACTIONS (6)
  - Nausea [Unknown]
  - Hepatic necrosis [Unknown]
  - Decreased appetite [Unknown]
  - Coma hepatic [Unknown]
  - Jaundice [Unknown]
  - Hepatic failure [Unknown]

NARRATIVE: CASE EVENT DATE: 19820723
